FAERS Safety Report 13917851 (Version 10)
Quarter: 2020Q3

REPORT INFORMATION
  Report Type: Spontaneous
  Country: US (occurrence: US)
  Receive Date: 20170829
  Receipt Date: 20200820
  Transmission Date: 20201102
  Serious: Yes (Other)
  Sender: FDA-Public Use
  Company Number: US-PFIZER INC-2017366939

PATIENT
  Age: 62 Year
  Sex: Male
  Weight: 71.66 kg

DRUGS (12)
  1. SULFASALAZINE. [Suspect]
     Active Substance: SULFASALAZINE
     Indication: ARTHRITIS
     Dosage: 2000 MG, DAILY (TWO 500MG TABLETS IN THE MORNING AND ANOTHER 2 ABOUT 12 HOURS LATER)
     Route: 048
     Dates: start: 1995, end: 201802
  2. FOLIC ACID. [Concomitant]
     Active Substance: FOLIC ACID
     Indication: INFLAMMATION
     Dosage: 2 MG, DAILY
     Dates: start: 1995
  3. FOLIC ACID. [Concomitant]
     Active Substance: FOLIC ACID
     Indication: ARTHRITIS
  4. METHOTREXATE SODIUM. [Suspect]
     Active Substance: METHOTREXATE SODIUM
     Indication: ARTHRITIS
     Dosage: 20 MG, WEEKLY
  5. METHOTREXATE SODIUM. [Suspect]
     Active Substance: METHOTREXATE SODIUM
     Indication: INFLAMMATION
  6. METHOTREXATE. [Suspect]
     Active Substance: METHOTREXATE
     Indication: ARTHRITIS
     Dosage: 20 MG, WEEKLY
     Route: 048
     Dates: start: 1995, end: 201802
  7. METHOTREXATE. [Suspect]
     Active Substance: METHOTREXATE
     Indication: INFLAMMATION
  8. ENBREL [Suspect]
     Active Substance: ETANERCEPT
     Dosage: 50 ML PER WEEK BY INJECTION IN THE THIGH
     Dates: end: 201803
  9. SULFASALAZINE. [Suspect]
     Active Substance: SULFASALAZINE
     Indication: INFLAMMATION
  10. XELJANZ [Suspect]
     Active Substance: TOFACITINIB CITRATE
     Dosage: 5 MG
  11. HUMIRA [Suspect]
     Active Substance: ADALIMUMAB
     Dosage: UNK
     Route: 058
  12. XELJANZ XR [Suspect]
     Active Substance: TOFACITINIB CITRATE
     Dosage: 11 MG

REACTIONS (7)
  - Iritis [Unknown]
  - Low density lipoprotein abnormal [Unknown]
  - Eye disorder [Unknown]
  - Off label use [Unknown]
  - Vertigo [Unknown]
  - Drug ineffective for unapproved indication [Unknown]
  - Inflammation [Unknown]
